FAERS Safety Report 7638925-6 (Version None)
Quarter: 2011Q3

REPORT INFORMATION
  Report Type: 
  Country: None (occurrence: None)
  Receive Date: 20110721
  Receipt Date: 20110706
  Transmission Date: 20111222
  Serious: Yes (Hospitalization, Disabling, Other)
  Sender: FDA-Public Use
  Company Number: 20110319

PATIENT
  Age: 43 Year
  Sex: Male
  Weight: 152.4086 kg

DRUGS (8)
  1. DEXAMETHASONE SODIUM PHOSPHATE [Suspect]
     Indication: POISONING
     Dosage: 8 MG X 2 DOSES INTRAMUSCULAR
     Route: 030
     Dates: start: 20110323, end: 20110401
  2. CELESTONE TAB [Suspect]
     Indication: POISONING
     Dosage: INTRAMUSCULAR
     Route: 030
     Dates: start: 20110323, end: 20110323
  3. ADIPEX [Concomitant]
  4. LASIX [Concomitant]
  5. LOSARTAN POTASSIUM [Concomitant]
  6. VIAGRA [Concomitant]
  7. DEXAMETHASONE SODIUM PHOSPHATE [Suspect]
     Indication: POISONING
     Dosage: 8 MG X 2 DOSES
     Dates: start: 20110323, end: 20110401
  8. POTASSIUM CHLORIDE [Concomitant]

REACTIONS (9)
  - DECREASED ACTIVITY [None]
  - IMPAIRED WORK ABILITY [None]
  - ELECTROCARDIOGRAM T WAVE AMPLITUDE DECREASED [None]
  - PULMONARY HYPERTENSION [None]
  - BACK PAIN [None]
  - ECONOMIC PROBLEM [None]
  - CARDIAC FAILURE CONGESTIVE [None]
  - WHITE BLOOD CELL COUNT INCREASED [None]
  - GAIT DISTURBANCE [None]
